FAERS Safety Report 10982239 (Version 1)
Quarter: 2015Q2

REPORT INFORMATION
  Report Type: Spontaneous
  Country: US (occurrence: US)
  Receive Date: 20150403
  Receipt Date: 20150403
  Transmission Date: 20150821
  Serious: Yes (Life-Threatening)
  Sender: FDA-Public Use
  Company Number: US-ROCHE-644905

PATIENT
  Age: 43 Year
  Sex: Female

DRUGS (7)
  1. MABTHERA [Suspect]
     Active Substance: RITUXIMAB
     Indication: MONONEURITIS
     Dosage: 800 MG, 1/WEEK
     Route: 042
  2. METHOTREXATE [Suspect]
     Active Substance: METHOTREXATE
     Indication: PRODUCT USED FOR UNKNOWN INDICATION
     Dosage: UNK
     Route: 065
  3. PREDNISONE. [Concomitant]
     Active Substance: PREDNISONE
     Indication: MONONEUROPATHY MULTIPLEX
     Dosage: 20 MG, QD
     Route: 048
  4. CELLCEPT [Suspect]
     Active Substance: MYCOPHENOLATE MOFETIL\MYCOPHENOLATE MOFETIL HYDROCHLORIDE
     Indication: MONONEUROPATHY MULTIPLEX
     Dosage: UNK
     Route: 048
     Dates: start: 2005, end: 200807
  5. MABTHERA [Suspect]
     Active Substance: RITUXIMAB
     Dosage: UNK, REPORTED INDICATION: SJOGREN^S SYNDROME
     Route: 042
  6. MABTHERA [Suspect]
     Active Substance: RITUXIMAB
     Route: 042
  7. CYTOXAN [Suspect]
     Active Substance: CYCLOPHOSPHAMIDE
     Indication: MONONEUROPATHY MULTIPLEX
     Dosage: UNK
     Route: 042
     Dates: start: 200412, end: 200504

REACTIONS (1)
  - Progressive multifocal leukoencephalopathy [Not Recovered/Not Resolved]

NARRATIVE: CASE EVENT DATE: 20080703
